FAERS Safety Report 15084240 (Version 3)
Quarter: 2018Q3

REPORT INFORMATION
  Report Type: Spontaneous
  Country: US (occurrence: US)
  Receive Date: 20180628
  Receipt Date: 20180727
  Transmission Date: 20181010
  Serious: Yes (Other)
  Sender: FDA-Public Use
  Company Number: US-ASTRAZENECA-2018SE81233

PATIENT
  Age: 59 Year
  Sex: Female

DRUGS (1)
  1. FASENRA [Suspect]
     Active Substance: BENRALIZUMAB
     Indication: ASTHMA
     Dosage: 1.0DF UNKNOWN
     Route: 058
     Dates: start: 201803

REACTIONS (6)
  - Metastases to lung [Unknown]
  - Normochromic normocytic anaemia [Unknown]
  - Central nervous system lesion [Unknown]
  - Haematochezia [Unknown]
  - Retroperitoneal neoplasm metastatic [Unknown]
  - Asthenia [Unknown]
